FAERS Safety Report 18107405 (Version 6)
Quarter: 2022Q4

REPORT INFORMATION
  Report Type: Other
  Country: US (occurrence: None)
  Receive Date: 20200804
  Receipt Date: 20221013
  Transmission Date: 20230113
  Serious: Yes (Other)
  Sender: FDA-Public Use
  Company Number: US-ROCHE-2650442

PATIENT
  Age: 48 Year
  Sex: Female
  Weight: 81.720 kg

DRUGS (8)
  1. OCREVUS [Suspect]
     Active Substance: OCRELIZUMAB
     Indication: Relapsing-remitting multiple sclerosis
     Dosage: ONGOING: YES
     Route: 042
     Dates: start: 201807, end: 202109
  2. OCREVUS [Suspect]
     Active Substance: OCRELIZUMAB
     Dosage: DAY 1, DAY 15
     Route: 042
  3. OCREVUS [Suspect]
     Active Substance: OCRELIZUMAB
     Dosage: ONGOING; NO
     Route: 042
     Dates: start: 20180803, end: 20200122
  4. OCREVUS [Suspect]
     Active Substance: OCRELIZUMAB
     Dosage: ONGOING: NO
     Route: 042
     Dates: start: 201902, end: 20200122
  5. OCREVUS [Suspect]
     Active Substance: OCRELIZUMAB
     Dosage: (PRESCRIBED AS 300 MG ON DAY 1 AND DAY 15 AND 600 MG ONCE IN 6 MONTHS)
     Route: 042
     Dates: start: 20190101, end: 20200122
  6. OCREVUS [Suspect]
     Active Substance: OCRELIZUMAB
     Dosage: ONGOING-YES; DATE OF TREATMENT ADDED AS 01/JUL/2022
     Route: 042
     Dates: start: 202109
  7. ZOLOFT [Concomitant]
     Active Substance: SERTRALINE HYDROCHLORIDE
     Indication: Depression
     Dosage: ONGOING: YES
     Route: 048
     Dates: start: 20180613
  8. ATIVAN [Concomitant]
     Active Substance: LORAZEPAM
     Dosage: START DATE UNKNOWN USE AS NEEDED
     Route: 048

REACTIONS (6)
  - Pneumonia [Recovered/Resolved]
  - Urinary tract infection [Recovered/Resolved]
  - Chest pain [Recovered/Resolved]
  - B-lymphocyte count decreased [Not Recovered/Not Resolved]
  - Off label use [Unknown]
  - COVID-19 [Recovered/Resolved]

NARRATIVE: CASE EVENT DATE: 20210101
